FAERS Safety Report 8969709 (Version 1)
Quarter: 2012Q4

REPORT INFORMATION
  Report Type: 
  Country: US (occurrence: US)
  Receive Date: 20121218
  Receipt Date: 20121218
  Transmission Date: 20130627
  Serious: No
  Sender: FDA-Public Use
  Company Number: US-ABBOTT-11P-163-0848182-00

PATIENT
  Sex: Female
  Weight: 72.64 kg

DRUGS (4)
  1. PROMETRIUM [Suspect]
     Indication: HOT FLUSH
     Route: 048
     Dates: start: 20110728, end: 20110818
  2. PROMETRIUM [Suspect]
     Indication: MENOPAUSE
  3. EVAMIST [Concomitant]
     Indication: MENOPAUSE
  4. EVAMIST [Concomitant]
     Indication: HOT FLUSH

REACTIONS (6)
  - Headache [Not Recovered/Not Resolved]
  - Anxiety [Not Recovered/Not Resolved]
  - Insomnia [Not Recovered/Not Resolved]
  - Nausea [Not Recovered/Not Resolved]
  - Abdominal distension [Not Recovered/Not Resolved]
  - Flatulence [Not Recovered/Not Resolved]
